FAERS Safety Report 15070137 (Version 2)
Quarter: 2018Q4

REPORT INFORMATION
  Report Type: Spontaneous
  Country: US (occurrence: US)
  Receive Date: 20180626
  Receipt Date: 20181016
  Transmission Date: 20190204
  Serious: No
  Sender: FDA-Public Use
  Company Number: US-AMGEN-USASP2017097555

PATIENT
  Age: 51 Year
  Sex: Female

DRUGS (1)
  1. NEULASTA [Suspect]
     Active Substance: PEGFILGRASTIM
     Indication: PRODUCT USED FOR UNKNOWN INDICATION
     Dosage: UNK
     Route: 065

REACTIONS (5)
  - Underdose [Unknown]
  - White blood cell count abnormal [Not Recovered/Not Resolved]
  - Device monitoring procedure not performed [Unknown]
  - Wrong technique in product usage process [Unknown]
  - Neutrophil count abnormal [Not Recovered/Not Resolved]

NARRATIVE: CASE EVENT DATE: 2017
